FAERS Safety Report 7768206-1 (Version None)
Quarter: 2011Q3

REPORT INFORMATION
  Report Type: 
  Country: None (occurrence: None)
  Receive Date: 20110922
  Receipt Date: 20110922
  Transmission Date: 20111222
  Serious: Yes (Life-Threatening, Hospitalization)
  Sender: FDA-Public Use
  Company Number: None

PATIENT
  Sex: Female
  Weight: 53.16 kg

DRUGS (8)
  1. ALTACE [Concomitant]
  2. NEOMYCIN [Concomitant]
  3. METOPROLOL TARTRATE [Concomitant]
  4. ASPIRIN [Concomitant]
  5. MELOXICAM [Concomitant]
  6. DELSYM [Concomitant]
  7. ALTACE [Suspect]
     Indication: HYPERTENSION
     Dosage: 5MG
     Route: 048
  8. CEPHALEXIN [Concomitant]

REACTIONS (5)
  - PNEUMOTHORAX [None]
  - UPPER RESPIRATORY TRACT INFECTION [None]
  - DYSPHAGIA [None]
  - ANGIOEDEMA [None]
  - RESPIRATORY FAILURE [None]
